FAERS Safety Report 9638583 (Version 1)
Quarter: 2013Q4

REPORT INFORMATION
  Report Type: Spontaneous
  Country: NL (occurrence: NL)
  Receive Date: 20131022
  Receipt Date: 20131022
  Transmission Date: 20140711
  Serious: Yes (Death)
  Sender: FDA-Public Use
  Company Number: NL-AMGEN-NLDSP2013073322

PATIENT
  Age: 66 Year
  Sex: Male

DRUGS (15)
  1. XGEVA [Suspect]
     Indication: PROPHYLAXIS
     Dosage: UNK UNK, Q4WK
     Route: 065
     Dates: start: 20131005
  2. INSULATARD                         /00646002/ [Concomitant]
     Dosage: 300IE/3ML
  3. NOVOMIX [Concomitant]
     Dosage: 300IE/3ML
  4. PERINDOPRIL TERT-BUTYLAMINE [Concomitant]
     Dosage: 4 MG, UNK
  5. ASCAL BRISPER CARDIO NEURO [Concomitant]
     Dosage: 100 MG, UNK
  6. ATORVASTATINE                      /01326101/ [Concomitant]
     Dosage: 40 MG, UNK
  7. ESOMEPRAZOL                        /01479301/ [Concomitant]
     Dosage: 40 MG, UNK
  8. METFORMINE HCL [Concomitant]
     Dosage: 1000 UNK, UNK
  9. GLIMEPIRIDE [Concomitant]
     Dosage: 3 MG, UNK
  10. METAMUCIL                          /00029101/ [Concomitant]
  11. MIDAZOLAM                          /00634102/ [Concomitant]
     Dosage: 5MG/1ML
  12. TEMAZEPAM ACTAVIS [Concomitant]
     Dosage: 10 MG, UNK
  13. OXYCODONE HCL [Concomitant]
     Dosage: 10 MG, UNK
  14. OXYNORM [Concomitant]
     Dosage: 10 MG, UNK
  15. CALCI CHEW D3 [Concomitant]
     Dosage: 500 MG/ 400 IE

REACTIONS (1)
  - Death [Fatal]
